FAERS Safety Report 4579301-2 (Version None)
Quarter: 2005Q1

REPORT INFORMATION
  Report Type: 
  Country: None (occurrence: None)
  Receive Date: 20050209
  Receipt Date: 20050125
  Transmission Date: 20050727
  Serious: Yes (Other)
  Sender: FDA-Public Use
  Company Number: USA041182958

PATIENT
  Age: 52 Year
  Sex: Female
  Weight: 80 kg

DRUGS (5)
  1. CYMBALTA [Suspect]
     Indication: DEPRESSION
     Dosage: 60 MG
     Dates: start: 20040915, end: 20041018
  2. AVANDIA [Concomitant]
  3. WELLBUTRIN [Concomitant]
  4. KLONOPIN [Concomitant]
  5. MOBIC [Concomitant]

REACTIONS (2)
  - ALANINE AMINOTRANSFERASE INCREASED [None]
  - ASPARTATE AMINOTRANSFERASE INCREASED [None]
